FAERS Safety Report 7010470 (Version 2)
Quarter: 2014Q3

REPORT INFORMATION
  Report Type: Spontaneous
  Country: US (occurrence: None)
  Receive Date: 20090526
  Receipt Date: 20140721
  Transmission Date: 20150326
  Serious: Yes (Other)
  Sender: FDA-Public Use
  Company Number: 2009S1004079

PATIENT
  Age: 44 Year
  Sex: Female

DRUGS (1)
  1. PHOSPHO-SODA [Suspect]
     Active Substance: SODIUM PHOSPHATE, DIBASIC\SODIUM PHOSPHATE, MONOBASIC
     Indication: COLONOSCOPY
     Dosage: PO
     Route: 048
     Dates: start: 20070202

REACTIONS (6)
  - Fall [None]
  - Dry skin [None]
  - Renal failure chronic [None]
  - Diabetic complication [None]
  - Pain [None]
  - Blood glucose increased [None]

NARRATIVE: CASE EVENT DATE: 20070502
